FAERS Safety Report 11207365 (Version 1)
Quarter: 2015Q2

REPORT INFORMATION
  Report Type: Spontaneous
  Country: IT (occurrence: IT)
  Receive Date: 20150622
  Receipt Date: 20150622
  Transmission Date: 20150821
  Serious: Yes (Other)
  Sender: FDA-Public Use
  Company Number: IT-FRESENIUS KABI-FK201502930

PATIENT
  Age: 60 Year
  Sex: Male

DRUGS (3)
  1. HYDROXYUREA (MANUFACTURER UNKNOWN) [Suspect]
     Active Substance: HYDROXYUREA
     Indication: LARYNGEAL CANCER
     Route: 065
  2. CISPLATIN. [Suspect]
     Active Substance: CISPLATIN
     Indication: LARYNGEAL CANCER
     Route: 065
  3. AZACITIDINE. [Suspect]
     Active Substance: AZACITIDINE
     Indication: LARYNGEAL CANCER

REACTIONS (5)
  - Acute myeloid leukaemia [Unknown]
  - Marrow hyperplasia [None]
  - Haematopoietic neoplasm [Unknown]
  - Chronic myelomonocytic leukaemia [Unknown]
  - Myelodysplastic syndrome [None]
